FAERS Safety Report 8514077-5 (Version None)
Quarter: 2012Q3

REPORT INFORMATION
  Report Type: 
  Country: None (occurrence: None)
  Receive Date: 20120717
  Receipt Date: 20120706
  Transmission Date: 20120928
  Serious: Yes (Other)
  Sender: FDA-Public Use
  Company Number: GB-009507513-1207GBR002026

PATIENT

DRUGS (7)
  1. ZOCOR [Suspect]
     Indication: HYPERTENSION
  2. FYBOGEL [Concomitant]
  3. CLOPIDOGREL [Concomitant]
  4. JANUVIA [Concomitant]
  5. LISINOPRIL [Concomitant]
     Indication: HYPERTENSION
     Dosage: 20 MG, UNK
  6. LANSOPRAZOLE [Concomitant]
  7. METFORMIN HYDROCHLORIDE [Concomitant]

REACTIONS (2)
  - PAIN IN EXTREMITY [None]
  - ABASIA [None]
